FAERS Safety Report 12212350 (Version 1)
Quarter: 2016Q1

REPORT INFORMATION
  Report Type: Other
  Country: US (occurrence: US)
  Receive Date: 20160325
  Receipt Date: 20160325
  Transmission Date: 20160526
  Serious: No
  Sender: FDA-Public Use
  Company Number: US-DEP_02591_2015

PATIENT
  Sex: Female

DRUGS (20)
  1. POTASSIUM HCL ER [Concomitant]
     Dates: start: 2015
  2. GRALISE [Suspect]
     Active Substance: GABAPENTIN
     Indication: SPINAL COLUMN STENOSIS
     Route: 048
     Dates: start: 2014
  3. STOOL SOFTENER [Concomitant]
     Active Substance: DOCUSATE CALCIUM
     Dosage: DF
     Dates: start: 2012
  4. AMLODIPINE BESYLATE. [Concomitant]
     Active Substance: AMLODIPINE BESYLATE
     Dosage: WITHIN THE LAST 2 YEARS
  5. TYLENOL PM [Concomitant]
     Active Substance: ACETAMINOPHEN\DIPHENHYDRAMINE
     Indication: PAIN
     Dosage: ^LONG TIME^, DF, AS NEEDED
  6. FERROUS GLUCONATE [Concomitant]
     Active Substance: FERROUS GLUCONATE
     Indication: BLOOD IRON ABNORMAL
     Dosage: IN THE MORNING AND EVENING
     Route: 048
     Dates: start: 2012
  7. VITAMIN D3 [Concomitant]
     Active Substance: CHOLECALCIFEROL
     Indication: ARTHRITIS
     Dates: start: 2014
  8. GRALISE [Suspect]
     Active Substance: GABAPENTIN
     Indication: OFF LABEL USE
     Route: 048
     Dates: start: 2014
  9. TYLENOL [Concomitant]
     Active Substance: ACETAMINOPHEN
     Indication: PAIN
     Dosage: ^A LONG TIME^, AS NEEDED
     Route: 048
  10. CALCIUM + D [Concomitant]
     Active Substance: CALCIUM\VITAMIN D
     Indication: MUSCLE SPASMS
     Route: 048
     Dates: start: 1997
  11. ATORVASTATIN [Concomitant]
     Active Substance: ATORVASTATIN
     Dates: start: 2013
  12. ADVAIR HFA [Concomitant]
     Active Substance: FLUTICASONE PROPIONATE\SALMETEROL XINAFOATE
     Indication: CHRONIC OBSTRUCTIVE PULMONARY DISEASE
     Dosage: 115-21 MCG, 2 PUFFS, TWICE DAILY
     Dates: start: 2012
  13. OPSUMIT [Concomitant]
     Active Substance: MACITENTAN
     Indication: PULMONARY ARTERIAL HYPERTENSION
     Route: 048
     Dates: start: 2013
  14. MONTELUKAST SOD [Concomitant]
     Active Substance: MONTELUKAST SODIUM
     Indication: CHRONIC OBSTRUCTIVE PULMONARY DISEASE
     Route: 048
     Dates: start: 2013
  15. SYNTHROID [Concomitant]
     Active Substance: LEVOTHYROXINE SODIUM
     Dosage: OVER 20 YEARS AGO
  16. FUROSEMIDE. [Concomitant]
     Active Substance: FUROSEMIDE
     Dosage: OVER 2 YEARS AGO.
  17. NEXIUM [Concomitant]
     Active Substance: ESOMEPRAZOLE MAGNESIUM
     Dosage: DF
     Dates: start: 201409
  18. CETIRIZINE HCL [Concomitant]
     Active Substance: CETIRIZINE HYDROCHLORIDE
     Indication: EAR DISORDER
     Dates: start: 2014
  19. VITAMIN C [Concomitant]
     Active Substance: ASCORBIC ACID
     Route: 048
     Dates: start: 2014
  20. FLUTICASONE PROP [Concomitant]
     Indication: EAR DISCOMFORT
     Dosage: 1 SPRAY IN EACH NOSTRIL, ONCE A DAY, BEGINNING 6 MONTHS AGO.

REACTIONS (5)
  - Speech disorder [Not Recovered/Not Resolved]
  - Productive cough [Not Recovered/Not Resolved]
  - Blood iron decreased [Recovered/Resolved]
  - Rhinorrhoea [Not Recovered/Not Resolved]
  - Nasopharyngitis [Not Recovered/Not Resolved]

NARRATIVE: CASE EVENT DATE: 201410
